FAERS Safety Report 9138196 (Version 1)
Quarter: 2013Q1

REPORT INFORMATION
  Report Type: Spontaneous
  Country: BR (occurrence: BR)
  Receive Date: 20130304
  Receipt Date: 20130304
  Transmission Date: 20140127
  Serious: Yes (Other)
  Sender: FDA-Public Use
  Company Number: PHHY2012BR127977

PATIENT
  Sex: Male

DRUGS (1)
  1. RITALIN LA [Suspect]
     Dosage: 10 MG, UNK
     Route: 048

REACTIONS (3)
  - Autism [Unknown]
  - Disturbance in attention [Unknown]
  - Learning disorder [Unknown]
